FAERS Safety Report 8841740 (Version 1)
Quarter: 2012Q4

REPORT INFORMATION
  Report Type: Spontaneous
  Country: US (occurrence: None)
  Receive Date: 20121011
  Receipt Date: 20121011
  Transmission Date: 20130627
  Serious: Yes (Hospitalization)
  Sender: FDA-Public Use
  Company Number: JPI-P-025562

PATIENT
  Age: 60 Year
  Sex: Female

DRUGS (3)
  1. XYREM (500 MILLIGRAM/MILLILITERS, SOLUTION)(SODIUM OXYBATE) [Suspect]
     Indication: NARCOLEPSY
     Dosage: 9 gm (4.5 gm, 2 in 1 D), Oral
     Route: 048
     Dates: start: 20110411
  2. XYREM (500 MILLIGRAM/MILLILITERS, SOLUTION)(SODIUM OXYBATE) [Suspect]
     Indication: NARCOLEPSY
     Route: 048
  3. XYREM (500 MILLIGRAM/MILLILITERS, SOLUTION)(SODIUM OXYBATE) [Suspect]
     Indication: NARCOLEPSY
     Route: 048
     Dates: start: 20120904

REACTIONS (16)
  - Myocardial infarction [None]
  - Feeling of body temperature change [None]
  - Speech disorder [None]
  - Activities of daily living impaired [None]
  - Rectal haemorrhage [None]
  - Tinnitus [None]
  - Confusional state [None]
  - Nasopharyngitis [None]
  - Sinus congestion [None]
  - Memory impairment [None]
  - Gait disturbance [None]
  - Fatigue [None]
  - Hallucination [None]
  - Fall [None]
  - Somnambulism [None]
  - Somnolence [None]
